FAERS Safety Report 6022915-3 (Version None)
Quarter: 2008Q4

REPORT INFORMATION
  Report Type: 
  Country: None (occurrence: None)
  Receive Date: 20081224
  Receipt Date: 20081224
  Transmission Date: 20090506
  Serious: Yes (Life-Threatening, Hospitalization, Disabling, Congenital Anomaly, Other)
  Sender: FDA-Public Use
  Company Number: None

PATIENT
  Age: 1 Year
  Sex: Female

DRUGS (4)
  1. NEURONTIN [Suspect]
     Indication: CONVULSION
     Dosage: GABAPENTIN 300MG 3X PO
     Route: 048
     Dates: start: 19990515, end: 20081224
  2. DALMANE [Suspect]
     Indication: INSOMNIA
     Dosage: DALMANE 60MG PO
     Route: 048
     Dates: start: 20081209, end: 20081224
  3. DALMANE [Suspect]
     Indication: SLEEP DISORDER
     Dosage: DALMANE 60MG PO
     Route: 048
     Dates: start: 20081209, end: 20081224
  4. DALMANE [Suspect]
     Indication: SLEEP TERROR
     Dosage: DALMANE 60MG PO
     Route: 048
     Dates: start: 20081209, end: 20081224

REACTIONS (6)
  - ATTENTION DEFICIT/HYPERACTIVITY DISORDER [None]
  - CONVULSION [None]
  - FEMUR FRACTURE [None]
  - MIGRAINE [None]
  - POST-TRAUMATIC STRESS DISORDER [None]
  - ROAD TRAFFIC ACCIDENT [None]
